FAERS Safety Report 7166473-9 (Version None)
Quarter: 2010Q4

REPORT INFORMATION
  Report Type: 
  Country: None (occurrence: None)
  Receive Date: 20101216
  Receipt Date: 20101208
  Transmission Date: 20110411
  Serious: Yes (Other)
  Sender: FDA-Public Use
  Company Number: PHHY2010JP83992

PATIENT
  Age: 77 Year
  Sex: Female

DRUGS (6)
  1. COMTAN [Suspect]
     Indication: PARKINSON'S DISEASE
     Dosage: 300 MG
  2. LEVODOPA [Concomitant]
     Indication: PARKINSON'S DISEASE
     Dosage: 350 MG
  3. SELEGILINE HYDROCHLORIDE [Concomitant]
     Indication: PARKINSON'S DISEASE
     Dosage: 7.5 MG
  4. PRAMIPEXOLE DIHYDROCHLORIDE [Concomitant]
     Indication: PARKINSON'S DISEASE
     Dosage: 1.5 MG
  5. ROPINIROLE HYDROCHLORIDE [Concomitant]
     Indication: PARKINSON'S DISEASE
     Dosage: 2 MG
  6. ROPINIROLE HYDROCHLORIDE [Concomitant]
     Dosage: 6 MG

REACTIONS (3)
  - DYSKINESIA [None]
  - HALLUCINATION, VISUAL [None]
  - SUDDEN ONSET OF SLEEP [None]
